FAERS Safety Report 8054270-1 (Version None)
Quarter: 2012Q1

REPORT INFORMATION
  Report Type: 
  Country: None (occurrence: None)
  Receive Date: 20120118
  Receipt Date: 20120110
  Transmission Date: 20120608
  Serious: Yes (Hospitalization, Other)
  Sender: FDA-Public Use
  Company Number: PHHY2011JP111311

PATIENT

DRUGS (2)
  1. CYCLOSPORINE [Suspect]
     Dosage: MATERNAL DOSE: 200 MGDAILY
     Route: 064
  2. PREDNISOLONE [Concomitant]

REACTIONS (7)
  - LOW BIRTH WEIGHT BABY [None]
  - FOETAL DISTRESS SYNDROME [None]
  - FOETAL GROWTH RESTRICTION [None]
  - PREMATURE BABY [None]
  - FOETAL EXPOSURE DURING PREGNANCY [None]
  - RESPIRATORY DISORDER NEONATAL [None]
  - DEVELOPMENTAL DELAY [None]
